FAERS Safety Report 7266955-5 (Version None)
Quarter: 2011Q1

REPORT INFORMATION
  Report Type: 
  Country: None (occurrence: None)
  Receive Date: 20110201
  Receipt Date: 20110125
  Transmission Date: 20110831
  Serious: Yes (Hospitalization)
  Sender: FDA-Public Use
  Company Number: DE-BRISTOL-MYERS SQUIBB COMPANY-14744346

PATIENT
  Age: 45 Year
  Sex: Male
  Weight: 86 kg

DRUGS (2)
  1. ETOPOSIDE [Suspect]
     Dosage: 24JUL09 22JUN09-29SEP09.100DAYS ALSO ON 26JUN09-ONG.LAST DOSE ON29SEP09 DRUG TAKEN OFF ON 27OCT10
     Route: 065
     Dates: start: 20090622, end: 20090929
  2. CISPLATIN [Suspect]
     Dosage: 29JUN09-ONG .22JUN09-02OCT09.468 DAYS LAST DOSE:25SEP09-02OCT2009 DRUG TAKEN OFF ON 27OCT10
     Route: 065
     Dates: start: 20090622, end: 20091002

REACTIONS (7)
  - THROMBOPHLEBITIS [None]
  - DYSPHAGIA [None]
  - LEUKOPENIA [None]
  - VOMITING [None]
  - NEUTROPENIA [None]
  - OESOPHAGITIS [None]
  - LARYNGITIS [None]
